FAERS Safety Report 5078910-4 (Version None)
Quarter: 2006Q3

REPORT INFORMATION
  Report Type: 
  Country: None (occurrence: None)
  Receive Date: 20060814
  Receipt Date: 20060801
  Transmission Date: 20061208
  Serious: Yes (Hospitalization)
  Sender: FDA-Public Use
  Company Number: US-AMGEN-US188580

PATIENT
  Age: 28 Year
  Sex: Female

DRUGS (10)
  1. ARANESP [Suspect]
     Indication: DIALYSIS
     Route: 058
     Dates: start: 20050601, end: 20060607
  2. RANITIDINE [Concomitant]
  3. SENSIPAR [Concomitant]
  4. CALCITRIOL [Concomitant]
  5. RENAGEL [Concomitant]
  6. TUMS [Concomitant]
  7. SODIUM BICARBONATE [Concomitant]
  8. PREDNISONE [Concomitant]
  9. CYCLOSPORINE [Concomitant]
  10. K-DUR 10 [Concomitant]

REACTIONS (4)
  - ANAEMIA [None]
  - ARTHRITIS INFECTIVE [None]
  - ASTHENIA [None]
  - DRUG INEFFECTIVE [None]
